FAERS Safety Report 9888189 (Version 1)
Quarter: 2014Q1

REPORT INFORMATION
  Report Type: Spontaneous
  Country: US (occurrence: None)
  Receive Date: 20140210
  Receipt Date: 20140210
  Transmission Date: 20141002
  Serious: No
  Sender: FDA-Public Use
  Company Number: None

PATIENT
  Age: 77 Year
  Sex: Female
  Weight: 77.11 kg

DRUGS (1)
  1. PREDNISOLONE [Suspect]
     Dosage: ONE DROP FOUR TIMES DAILY INTO THE EYE
     Route: 047

REACTIONS (3)
  - Superficial injury of eye [None]
  - Lacrimation increased [None]
  - Eye swelling [None]
